FAERS Safety Report 6807425-5 (Version None)
Quarter: 2010Q2

REPORT INFORMATION
  Report Type: 
  Country: None (occurrence: None)
  Receive Date: 20100625
  Receipt Date: 20100615
  Transmission Date: 20101027
  Serious: Yes (Other)
  Sender: FDA-Public Use
  Company Number: 2010-2151

PATIENT
  Age: 17 Year
  Sex: Male
  Weight: 32 kg

DRUGS (1)
  1. INCRELEX [Suspect]
     Indication: GROWTH HORMONE DEFICIENCY
     Dosage: 2 IN 1 D, PARENTERAL
     Route: 051
     Dates: start: 20100101, end: 20100425

REACTIONS (5)
  - DIZZINESS [None]
  - INJECTION SITE URTICARIA [None]
  - LOSS OF CONSCIOUSNESS [None]
  - PRURITUS [None]
  - URTICARIA [None]
